FAERS Safety Report 6336224-6 (Version None)
Quarter: 2009Q3

REPORT INFORMATION
  Report Type: 
  Country: None (occurrence: None)
  Receive Date: 20090901
  Receipt Date: 20090821
  Transmission Date: 20100115
  Serious: Yes (Hospitalization)
  Sender: FDA-Public Use
  Company Number: PHHY2009AU31972

PATIENT
  Sex: Female
  Weight: 54 kg

DRUGS (2)
  1. ACLASTA [Suspect]
     Indication: OSTEOPOROSIS
     Dosage: 5 MG, UNK
     Dates: start: 20090331
  2. LIPITOR [Concomitant]
     Indication: HYPERLIPIDAEMIA

REACTIONS (12)
  - BACK PAIN [None]
  - C-REACTIVE PROTEIN INCREASED [None]
  - CHOLECYSTITIS [None]
  - DRY SKIN [None]
  - HAEMATEMESIS [None]
  - LYMPHOPENIA [None]
  - MALAISE [None]
  - PAIN [None]
  - PYREXIA [None]
  - RENAL IMPAIRMENT [None]
  - TENDERNESS [None]
  - VOMITING [None]
